FAERS Safety Report 8843262 (Version 1)
Quarter: 2012Q4

REPORT INFORMATION
  Report Type: 
  Country: NZ (occurrence: NZ)
  Receive Date: 20121016
  Receipt Date: 20121016
  Transmission Date: 20130627
  Serious: Yes (Other)
  Sender: FDA-Public Use
  Company Number: PHHY2012NZ088714

PATIENT
  Age: 2 Month
  Sex: Female

DRUGS (2)
  1. ISONIAZID [Suspect]
  2. RIFAMPICIN [Suspect]

REACTIONS (3)
  - Vitamin D deficiency [Recovered/Resolved]
  - Hepatic enzyme increased [Recovered/Resolved]
  - Blood alkaline phosphatase increased [Recovered/Resolved]
